FAERS Safety Report 6943237-X (Version None)
Quarter: 2010Q3

REPORT INFORMATION
  Report Type: 
  Country: None (occurrence: None)
  Receive Date: 20100826
  Receipt Date: 20100815
  Transmission Date: 20110219
  Serious: Yes (Other)
  Sender: FDA-Public Use
  Company Number: IL-PFIZER INC-2010102219

PATIENT
  Age: 13 Year
  Sex: Female

DRUGS (1)
  1. GENOTROPIN [Suspect]
     Dosage: 8MG AND 1MG ALTERNATE DAYS
     Dates: end: 20100801

REACTIONS (2)
  - BONE PAIN [None]
  - MUSCULAR WEAKNESS [None]
